FAERS Safety Report 20100127 (Version 1)
Quarter: 2021Q4

REPORT INFORMATION
  Report Type: Spontaneous
  Country: US (occurrence: US)
  Receive Date: 20211123
  Receipt Date: 20211123
  Transmission Date: 20220303
  Serious: Yes (Other)
  Sender: FDA-Public Use
  Company Number: US-NOVARTISPH-NVSC2021US264486

PATIENT
  Sex: Female

DRUGS (10)
  1. RANITIDINE [Suspect]
     Active Substance: RANITIDINE
     Indication: Erosive oesophagitis
     Dosage: 150 MG, QD
     Route: 065
     Dates: end: 200601
  2. RANITIDINE [Suspect]
     Active Substance: RANITIDINE
     Indication: Gastric ulcer
  3. RANITIDINE [Suspect]
     Active Substance: RANITIDINE
     Indication: Intestinal ulcer
  4. RANITIDINE [Suspect]
     Active Substance: RANITIDINE
     Indication: Oesophageal ulcer
  5. RANITIDINE [Suspect]
     Active Substance: RANITIDINE
     Indication: Duodenal ulcer
  6. RANITIDINE [Suspect]
     Active Substance: RANITIDINE
     Indication: Erosive oesophagitis
     Dosage: 150 MG, QD
     Route: 065
     Dates: end: 200601
  7. RANITIDINE [Suspect]
     Active Substance: RANITIDINE
     Indication: Gastric ulcer
  8. RANITIDINE [Suspect]
     Active Substance: RANITIDINE
     Indication: Intestinal ulcer
  9. RANITIDINE [Suspect]
     Active Substance: RANITIDINE
     Indication: Oesophageal ulcer
  10. RANITIDINE [Suspect]
     Active Substance: RANITIDINE
     Indication: Duodenal ulcer

REACTIONS (2)
  - Pancreatic carcinoma stage IV [Recovering/Resolving]
  - Incorrect dose administered [Unknown]
